FAERS Safety Report 18839159 (Version 2)
Quarter: 2021Q1

REPORT INFORMATION
  Report Type: Report from Study
  Country: PL (occurrence: PL)
  Receive Date: 20210203
  Receipt Date: 20210211
  Transmission Date: 20210419
  Serious: Yes (Other)
  Sender: FDA-Public Use
  Company Number: PL-PFIZER INC-2021083461

PATIENT
  Sex: Male
  Weight: 46.6 kg

DRUGS (11)
  1. BUDESONIDE. [Concomitant]
     Active Substance: BUDESONIDE
     Indication: ASTHMA
     Dosage: 0.5 MG
     Route: 048
     Dates: start: 20190312, end: 20190318
  2. BUDESONIDE. [Concomitant]
     Active Substance: BUDESONIDE
     Indication: PHARYNGITIS
     Dosage: 1 DF (PUFF)
     Dates: start: 20110917
  3. METHOTREXATE. [Suspect]
     Active Substance: METHOTREXATE
     Dosage: 15 MG, WEEKLY
     Route: 048
     Dates: start: 20180307, end: 20181231
  4. XALOPTIC [Concomitant]
     Indication: GLAUCOMA
     Dosage: 1 DROP, 1X/DAY
     Dates: start: 20180228
  5. METHOTREXATE. [Suspect]
     Active Substance: METHOTREXATE
     Indication: JUVENILE IDIOPATHIC ARTHRITIS
     Dosage: 12.5 MG, WEEKLY
     Route: 048
     Dates: start: 20171205, end: 20180306
  6. METHYLPREDNISOLONE. [Suspect]
     Active Substance: METHYLPREDNISOLONE
     Dosage: 12 MG, 1X/DAY
     Route: 048
     Dates: start: 20171205, end: 20190630
  7. HYDROXYCHLOROQUINE [Suspect]
     Active Substance: HYDROXYCHLOROQUINE
     Indication: JUVENILE IDIOPATHIC ARTHRITIS
     Dosage: 200 MG, 1X/DAY
     Route: 048
     Dates: start: 20180614
  8. VIGANTOLETTEN [Concomitant]
     Active Substance: CHOLECALCIFEROL
     Indication: VITAMIN D DEFICIENCY
     Dosage: 1000 IU, 1X/DAY
     Route: 048
     Dates: start: 20171128
  9. KALII CHLORIDUM [Concomitant]
     Dosage: DOSE 1 OTHER
     Route: 048
     Dates: start: 20171205, end: 20180417
  10. METHYLPREDNISOLONE. [Suspect]
     Active Substance: METHYLPREDNISOLONE
     Indication: JUVENILE IDIOPATHIC ARTHRITIS
     Dosage: 12 MG, 1X/DAY
     Route: 048
     Dates: start: 20171005, end: 20180417
  11. OMEPRAZOLUM [Concomitant]
     Dosage: 20 MG, 1X/DAY
     Route: 048
     Dates: start: 20171205, end: 20180417

REACTIONS (4)
  - Transaminases increased [Recovered/Resolved]
  - Cushing^s syndrome [Recovering/Resolving]
  - Pharyngitis [Unknown]
  - Vomiting [Unknown]

NARRATIVE: CASE EVENT DATE: 20180306
